FAERS Safety Report 7859911-7 (Version None)
Quarter: 2011Q4

REPORT INFORMATION
  Report Type: 
  Country: None (occurrence: None)
  Receive Date: 20111027
  Receipt Date: 20111026
  Transmission Date: 20120403
  Serious: Yes (Hospitalization, Other)
  Sender: FDA-Public Use
  Company Number: ES-PFIZER INC-2011255789

PATIENT
  Age: 59 Year
  Sex: Male

DRUGS (6)
  1. OMEPRAZOLE [Concomitant]
     Dosage: 20 UG, 1X/DAY
     Route: 048
  2. SIMVASTATIN [Concomitant]
     Indication: DYSLIPIDAEMIA
     Dosage: 20 MG, 1X/DAY
     Route: 048
  3. SUTENT [Suspect]
     Indication: RENAL CANCER STAGE IV
     Dosage: 50 MG, 1X/DAY
     Route: 048
     Dates: start: 20110618, end: 20110713
  4. FUNGAREST [Concomitant]
     Dosage: UNK
     Route: 061
     Dates: end: 20110713
  5. ALLOPURINOL [Concomitant]
     Indication: GOUT
     Dosage: 300 MG, 1X/DAY
     Route: 048
  6. MANIDON HTA [Concomitant]
     Indication: HYPERTROPHIC CARDIOMYOPATHY
     Dosage: 240 MG, 1X/DAY
     Route: 048

REACTIONS (2)
  - HYPERBILIRUBINAEMIA [None]
  - HEPATITIS [None]
